FAERS Safety Report 19467142 (Version 1)
Quarter: 2021Q2

REPORT INFORMATION
  Report Type: Spontaneous
  Country: BR (occurrence: BR)
  Receive Date: 20210628
  Receipt Date: 20210628
  Transmission Date: 20210717
  Serious: Yes (Other)
  Sender: FDA-Public Use
  Company Number: BR-ABBVIE-21P-020-3884967-00

PATIENT
  Age: 25 Year
  Sex: Male
  Weight: 80 kg

DRUGS (4)
  1. DIVALPROEX SODIUM ER [Suspect]
     Active Substance: DIVALPROEX SODIUM
     Route: 048
  2. DEPAKOTE ER [Suspect]
     Active Substance: DIVALPROEX SODIUM
     Dosage: DD: 1500 MG; 1 TABLET IN MORNING AND 2 AT NIGHT
     Route: 048
     Dates: start: 202101
  3. DIVALPROEX SODIUM ER [Suspect]
     Active Substance: DIVALPROEX SODIUM
     Indication: PRODUCT USED FOR UNKNOWN INDICATION
     Dosage: DD: 1500MG; 2TABLETS AT NIGHT AND 1 IN MORNING
     Route: 048
     Dates: start: 202101
  4. DEPAKOTE ER [Suspect]
     Active Substance: DIVALPROEX SODIUM
     Indication: EPILEPSY
     Dosage: PATIENT STARTED DEPAKOTE ER THERAPY TAKING 1 TABLET
     Route: 048

REACTIONS (5)
  - Drug ineffective [Not Recovered/Not Resolved]
  - Off label use [Unknown]
  - Seizure [Not Recovered/Not Resolved]
  - Inappropriate schedule of product administration [Unknown]
  - Product quality issue [Unknown]

NARRATIVE: CASE EVENT DATE: 202101
